FAERS Safety Report 7286793-7 (Version None)
Quarter: 2011Q1

REPORT INFORMATION
  Report Type: 
  Country: None (occurrence: None)
  Receive Date: 20110210
  Receipt Date: 20110117
  Transmission Date: 20110831
  Serious: Yes (Other)
  Sender: FDA-Public Use
  Company Number: BR-AMGEN-US435289

PATIENT
  Age: 57 Year
  Sex: Female
  Weight: 55 kg

DRUGS (15)
  1. ACETAMINOPHEN [Concomitant]
     Dosage: 400 MG, UNK
  2. RANITIDINE [Concomitant]
     Dosage: 150 MG, UNK
  3. METHOTREXATE [Concomitant]
  4. FAMOTIDINE [Concomitant]
     Dosage: 80 MG, UNK
  5. DOMPERIDONE [Concomitant]
     Dosage: 10 MG, UNK
  6. DIACEREIN [Concomitant]
     Dosage: 100 MG, UNK
  7. CLONAZEPAM [Concomitant]
  8. CARISOPRODOL [Concomitant]
     Dosage: 10 MG, UNK
  9. DEFLAZACORT [Concomitant]
     Dosage: 3 MG, UNK
  10. RIVOTRIL [Concomitant]
  11. BUPROPION HCL [Concomitant]
     Dosage: 150 UNK, UNK
  12. CYCLOBENZAPRINE [Concomitant]
     Dosage: 15 MG, UNK
  13. ENBREL [Suspect]
     Dosage: 50 MG, QWK
     Route: 058
     Dates: start: 20100801
  14. ENBREL [Suspect]
     Dosage: 50 MG, WEEKLY
     Route: 058
     Dates: start: 20100101, end: 20101001
  15. TRAZODONE [Concomitant]

REACTIONS (3)
  - GASTROINTESTINAL CARCINOMA [None]
  - NEOPLASM MALIGNANT [None]
  - LYMPHOMA [None]
